FAERS Safety Report 18774630 (Version 1)
Quarter: 2021Q1

REPORT INFORMATION
  Report Type: Spontaneous
  Country: FR (occurrence: FR)
  Receive Date: 20210122
  Receipt Date: 20210122
  Transmission Date: 20210419
  Serious: Yes (Other)
  Sender: FDA-Public Use
  Company Number: FR-PFIZER INC-2021023326

PATIENT
  Age: 74 Year
  Sex: Female

DRUGS (1)
  1. LEVETIRACETAM. [Suspect]
     Active Substance: LEVETIRACETAM
     Indication: SEIZURE
     Dosage: 500MG TWICE A DAY IN 48 HOURS

REACTIONS (3)
  - Affect lability [Recovering/Resolving]
  - Logorrhoea [Recovering/Resolving]
  - Mania [Recovering/Resolving]
